FAERS Safety Report 22305010 (Version 1)
Quarter: 2023Q2

REPORT INFORMATION
  Report Type: Spontaneous
  Country: FR (occurrence: FR)
  Receive Date: 20230510
  Receipt Date: 20230510
  Transmission Date: 20230721
  Serious: Yes (Hospitalization, Other)
  Sender: FDA-Public Use
  Company Number: FR-BAYER-2023A033498

PATIENT
  Sex: Female
  Weight: 51 kg

DRUGS (7)
  1. REGORAFENIB [Suspect]
     Active Substance: REGORAFENIB
     Indication: Colorectal cancer metastatic
     Dosage: DAILY DOSE 80 MG
     Route: 048
     Dates: start: 20230225
  2. LANSOPRAZOLE [Concomitant]
     Active Substance: LANSOPRAZOLE
     Dosage: 30 MG, QD
  3. ACETAMINOPHEN [Concomitant]
     Active Substance: ACETAMINOPHEN
     Indication: Pain
     Dosage: 1000 MG EVERY 6 HRS
  4. TRAMADOL [Concomitant]
     Active Substance: TRAMADOL
     Indication: Pain
     Dosage: INITIAL DOSE OF 100 MG THEN 50 MG EVERY 4 TO 6 H,
  5. PHLOROGLUCINOL [Concomitant]
     Active Substance: PHLOROGLUCINOL
     Dosage: 1 TO 2 TABS TID
  6. PRIMPERAN [Concomitant]
     Active Substance: METOCLOPRAMIDE HYDROCHLORIDE
     Indication: Nausea
     Dosage: 10 MG, QD
  7. LEVOFLOXACIN [Concomitant]
     Active Substance: LEVOFLOXACIN
     Dosage: 0.4 ML FOR 1 MONTH

REACTIONS (8)
  - Venoocclusive liver disease [Recovered/Resolved]
  - Intestinal perforation [Recovered/Resolved]
  - Rectal neoplasm [Recovering/Resolving]
  - Colostomy [Recovered/Resolved]
  - Abdominal pain [Recovering/Resolving]
  - Vomiting [Recovered/Resolved]
  - Constipation [Recovered/Resolved]
  - Off label use [None]

NARRATIVE: CASE EVENT DATE: 20230311
